FAERS Safety Report 14013711 (Version 1)
Quarter: 2017Q3

REPORT INFORMATION
  Report Type: Spontaneous
  Country: US (occurrence: US)
  Receive Date: 20170926
  Receipt Date: 20170926
  Transmission Date: 20171128
  Serious: No
  Sender: FDA-Public Use
  Company Number: US-GALDERMA-US17000173

PATIENT
  Age: 14 Year
  Sex: Female
  Weight: 52.62 kg

DRUGS (1)
  1. EPIDUO [Suspect]
     Active Substance: ADAPALENE\BENZOYL PEROXIDE
     Indication: ACNE
     Route: 061
     Dates: start: 201701, end: 20170108

REACTIONS (3)
  - Skin burning sensation [Unknown]
  - Application site dryness [Unknown]
  - Application site rash [Unknown]

NARRATIVE: CASE EVENT DATE: 20170106
